FAERS Safety Report 13962458 (Version 1)
Quarter: 2017Q3

REPORT INFORMATION
  Report Type: Report from Study
  Country: AU (occurrence: AU)
  Receive Date: 20170913
  Receipt Date: 20170913
  Transmission Date: 20171128
  Serious: Yes (Other)
  Sender: FDA-Public Use
  Company Number: AU-ROCHE-1909871

PATIENT

DRUGS (3)
  1. CAPECITABINE. [Suspect]
     Active Substance: CAPECITABINE
     Indication: NEOPLASM MALIGNANT
     Route: 048
  2. IRINOTECAN [Suspect]
     Active Substance: IRINOTECAN
     Indication: NEOPLASM MALIGNANT
     Route: 042
  3. CISPLATIN. [Suspect]
     Active Substance: CISPLATIN
     Indication: NEOPLASM MALIGNANT
     Route: 042

REACTIONS (13)
  - Vomiting [Unknown]
  - Peripheral sensory neuropathy [Unknown]
  - Infection [Unknown]
  - Neutropenia [Unknown]
  - Anaemia [Unknown]
  - Peripheral motor neuropathy [Unknown]
  - Febrile neutropenia [Unknown]
  - Hypokalaemia [Unknown]
  - Dehydration [Unknown]
  - Fatigue [Unknown]
  - Lethargy [Unknown]
  - Diarrhoea [Unknown]
  - Abdominal pain [Unknown]
